FAERS Safety Report 7678750-3 (Version None)
Quarter: 2011Q3

REPORT INFORMATION
  Report Type: 
  Country: None (occurrence: None)
  Receive Date: 20110811
  Receipt Date: 20110801
  Transmission Date: 20111222
  Serious: Yes (Hospitalization)
  Sender: FDA-Public Use
  Company Number: US-CELGENEUS-163-AB007-11072028

PATIENT
  Sex: Female
  Weight: 89.1 kg

DRUGS (57)
  1. CYCLOBENZAPRINE [Concomitant]
     Indication: MUSCLE SPASMS
     Dosage: 10 MILLIGRAM
     Route: 048
  2. CYMBALTA [Concomitant]
     Indication: MENTAL STATUS CHANGES
     Route: 048
     Dates: start: 20110401, end: 20110713
  3. LEVOTHYROXINE SODIUM [Concomitant]
     Indication: HYPOTHYROIDISM
     Dosage: 100 MICROGRAM
     Route: 065
  4. REGLAN [Concomitant]
     Route: 041
     Dates: start: 20110528, end: 20110713
  5. DILAUDID [Concomitant]
     Indication: PAIN
     Route: 048
     Dates: start: 20110401, end: 20110711
  6. ATIVAN [Concomitant]
     Indication: ANXIETY
     Dosage: 1 MILLIGRAM
     Route: 048
     Dates: start: 20110714, end: 20110722
  7. GEMCITABINE [Suspect]
     Dosage: 1000 MILLIGRAM/SQ. METER
     Route: 041
     Dates: start: 20110711, end: 20110718
  8. MORPHINE [Concomitant]
     Indication: BREAKTHROUGH PAIN
     Dosage: 50 MILLIGRAM
     Route: 065
  9. MORPHINE [Concomitant]
     Dosage: 15 MILLIGRAM
     Route: 048
     Dates: start: 20110711
  10. DEXAMETHASONE [Concomitant]
     Indication: PROPHYLAXIS
     Dosage: 4 MILLIGRAM
     Route: 048
  11. CYMBALTA [Concomitant]
     Indication: DEPRESSION
     Dosage: 60 MILLIGRAM
     Route: 065
  12. CITALOPRAM HYDROBROMIDE [Concomitant]
     Dosage: 20 MILLIGRAM
     Route: 065
  13. FLUIDS [Concomitant]
     Route: 040
  14. OMEPRAZOLE [Concomitant]
     Indication: PROPHYLAXIS
     Dosage: 20 MILLIGRAM
     Route: 048
     Dates: start: 20110627
  15. METHYLPREDNISOLONE [Concomitant]
  16. TYLENOL-500 [Concomitant]
     Dosage: 650 MILLIGRAM
     Route: 048
     Dates: start: 20110528
  17. ATIVAN [Concomitant]
     Indication: INSOMNIA
  18. AMBIEN [Concomitant]
     Indication: INSOMNIA
     Dosage: 10 MILLIGRAM
     Route: 048
     Dates: start: 20110714, end: 20110722
  19. ZOFRAN [Concomitant]
     Indication: VOMITING
     Dosage: 8 MILLIGRAM
     Route: 048
     Dates: start: 20110616
  20. TRAZODONE HCL [Concomitant]
     Indication: DEPRESSION
  21. CYCLOBENZAPRINE [Concomitant]
  22. COMPAZINE [Concomitant]
     Dosage: 10 MILLIGRAM
     Route: 065
  23. COMPAZINE [Concomitant]
     Indication: VOMITING
     Route: 048
     Dates: start: 20110528
  24. COLACE [Concomitant]
     Indication: CONSTIPATION
     Route: 048
     Dates: start: 20110512
  25. TYLENOL-500 [Concomitant]
     Indication: HEADACHE
  26. TRAZODONE HCL [Concomitant]
     Indication: INSOMNIA
     Dosage: 100 MILLIGRAM
     Route: 048
  27. MORPHINE [Concomitant]
     Indication: PAIN
     Dosage: 3
     Route: 048
  28. CYMBALTA [Concomitant]
     Dosage: 60 MILLIGRAM
     Route: 048
     Dates: start: 20110714, end: 20110722
  29. LEVOTHYROXINE SODIUM [Concomitant]
     Dosage: 100 MICROGRAM
     Route: 048
     Dates: start: 20110714, end: 20110722
  30. PANTOPRAZOLE [Concomitant]
     Indication: ABDOMINAL DISCOMFORT
     Route: 041
     Dates: start: 20110528, end: 20110601
  31. FLEXERIL [Concomitant]
     Route: 048
     Dates: start: 20110705
  32. MS CONTIN [Concomitant]
     Indication: PAIN
     Route: 048
     Dates: start: 20110512
  33. SENEKOT-S [Concomitant]
     Indication: CONSTIPATION
     Route: 048
     Dates: start: 20110401
  34. SWEEN [Concomitant]
     Route: 061
     Dates: start: 20110714, end: 20110722
  35. GEMCITABINE [Suspect]
     Dosage: 1000 MILLIGRAM/SQ. METER
     Route: 041
     Dates: start: 20110509
  36. GABAPENTIN [Concomitant]
     Indication: ABDOMINAL PAIN
     Dosage: 300 MILLIGRAM
     Route: 065
  37. LEVOTHYROXINE SODIUM [Concomitant]
     Route: 048
     Dates: start: 20000101
  38. REGLAN [Concomitant]
     Indication: VOMITING
  39. METHYLPREDNISOLONE [Concomitant]
     Route: 048
     Dates: start: 20110627, end: 20110701
  40. ABRAXANE [Suspect]
     Dosage: 125 MILLIGRAM/SQ. METER
     Route: 041
     Dates: start: 20110711, end: 20110718
  41. GABAPENTIN [Concomitant]
     Dosage: 600 MILLIGRAM
     Route: 048
     Dates: start: 20110714, end: 20110722
  42. NORMAL SALINE WITH KCL [Concomitant]
     Dosage: .9NS WITH 20MEQ KCL, 1000 ML
     Route: 041
     Dates: start: 20110714, end: 20110722
  43. HYDROCORTISONE [Concomitant]
     Route: 061
     Dates: start: 20110714, end: 20110722
  44. MAGNESIUM OXIDE [Concomitant]
     Dosage: 400 MILLIGRAM
     Route: 048
     Dates: start: 20110720, end: 20110722
  45. ABRAXANE [Suspect]
     Dosage: 125 MILLIGRAM/SQ. METER
     Route: 041
     Dates: start: 20110726
  46. ZOFRAN [Concomitant]
     Indication: NAUSEA
     Dosage: 8 MILLIGRAM
     Route: 048
  47. GABAPENTIN [Concomitant]
     Route: 048
     Dates: start: 20110401
  48. COMPAZINE [Concomitant]
     Route: 054
     Dates: start: 20110619
  49. PANTOPRAZOLE [Concomitant]
     Dosage: 40 MILLIGRAM
     Route: 065
     Dates: start: 20110714, end: 20110722
  50. ULTRAM [Concomitant]
     Route: 048
     Dates: start: 20110616, end: 20110713
  51. POTASSIUM CHLORIDE [Concomitant]
     Dosage: 40 MILLIEQUIVALENTS
     Route: 048
     Dates: start: 20110714, end: 20110722
  52. ABRAXANE [Suspect]
     Dosage: 125 MILLIGRAM/SQ. METER
     Route: 041
     Dates: start: 20110509
  53. GEMCITABINE [Suspect]
     Dosage: 1000 MILLIGRAM/SQ. METER
     Route: 041
     Dates: start: 20110726
  54. MORPHINE [Concomitant]
     Dosage: 45 MILLIGRAM
     Route: 048
     Dates: start: 20110714, end: 20110722
  55. DEXAMETHASONE [Concomitant]
     Route: 048
     Dates: start: 20110705, end: 20110713
  56. LOPERAMIDE HCL [Concomitant]
     Route: 048
     Dates: start: 20110616
  57. MIRALAX [Concomitant]
     Indication: CONSTIPATION
     Route: 048
     Dates: start: 20110512

REACTIONS (2)
  - KLEBSIELLA BACTERAEMIA [None]
  - HYPOTENSION [None]
